FAERS Safety Report 8942699 (Version 2)
Quarter: 2013Q2

REPORT INFORMATION
  Report Type: Spontaneous
  Country: US (occurrence: US)
  Receive Date: 20121204
  Receipt Date: 20130514
  Transmission Date: 20140414
  Serious: No
  Sender: FDA-Public Use
  Company Number: US-009507513-1211USA012370

PATIENT
  Age: 57 Year
  Sex: Female

DRUGS (3)
  1. PEGINTRON [Suspect]
     Indication: HEPATITIS C
     Dosage: UNK
     Dates: start: 20121112
  2. RIBAVIRIN (WARRICK) [Suspect]
     Indication: HEPATITIS C
     Dosage: UNK
     Dates: start: 20121112
  3. RIBAVIRIN (WARRICK) [Suspect]
     Dosage: UNK
     Dates: start: 20121127

REACTIONS (2)
  - Vomiting [Unknown]
  - Tremor [Unknown]
